FAERS Safety Report 8520445-8 (Version None)
Quarter: 2012Q3

REPORT INFORMATION
  Report Type: 
  Country: None (occurrence: None)
  Receive Date: 20120719
  Receipt Date: 20120709
  Transmission Date: 20120928
  Serious: Yes (Hospitalization)
  Sender: FDA-Public Use
  Company Number: FR-BRISTOL-MYERS SQUIBB COMPANY-16763492

PATIENT
  Age: 27 Year
  Sex: Female
  Weight: 66 kg

DRUGS (8)
  1. ZOLOFT [Suspect]
     Dosage: 1DF: 7
     Route: 048
     Dates: start: 20120611, end: 20120611
  2. AMLODIPINE BESYLATE [Suspect]
     Dosage: 7DF
     Route: 048
     Dates: start: 20120611
  3. GLUCOPHAGE [Suspect]
     Dosage: 1DF: 7
     Route: 048
     Dates: start: 20120611, end: 20120611
  4. LIPANOR [Suspect]
     Dosage: 7DF
     Route: 048
     Dates: start: 20120611, end: 20120611
  5. MINIPRESS [Suspect]
     Dosage: 5DF
     Route: 048
     Dates: start: 20120611, end: 20120611
  6. AMARYL [Suspect]
     Dosage: 7DF
     Route: 048
     Dates: start: 20120611, end: 20120611
  7. SITAGLIPTIN PHOSPHATE [Suspect]
     Dosage: 1DF: 7
     Route: 048
     Dates: start: 20120611, end: 20120611
  8. ENALAPRIL MALEATE AND HYDROCHLOROTHIAZIDE [Suspect]
     Dosage: 7DF
     Route: 048
     Dates: start: 20120611

REACTIONS (3)
  - TOXICITY TO VARIOUS AGENTS [None]
  - HYPOGLYCAEMIA [None]
  - METABOLIC ACIDOSIS [None]
